FAERS Safety Report 8347500-X (Version None)
Quarter: 2012Q2

REPORT INFORMATION
  Report Type: 
  Country: None (occurrence: None)
  Receive Date: 20120509
  Receipt Date: 20120427
  Transmission Date: 20120825
  Serious: Yes (Other)
  Sender: FDA-Public Use
  Company Number: GB-TEVA-317161ISR

PATIENT
  Sex: Female
  Weight: 54 kg

DRUGS (5)
  1. DOXYCYCLINE [Concomitant]
     Indication: SINUSITIS
     Route: 048
  2. KEPPRA [Suspect]
     Indication: PRODUCT USED FOR UNKNOWN INDICATION
     Route: 065
  3. LAMOTRIGINE [Interacting]
     Indication: EPILEPSY
     Dosage: 400 MILLIGRAM;
     Route: 048
     Dates: start: 20101101
  4. NEXPLANON [Interacting]
     Indication: CONTRACEPTION
     Route: 059
     Dates: start: 20110301
  5. LORATADINE [Concomitant]
     Indication: SEASONAL ALLERGY
     Dosage: 10 MILLIGRAM; ONGOING
     Route: 048
     Dates: start: 20110501

REACTIONS (3)
  - DRUG INTERACTION [None]
  - EPILEPSY [None]
  - CONVULSION [None]
